FAERS Safety Report 9242977 (Version 1)
Quarter: 2013Q2

REPORT INFORMATION
  Report Type: Spontaneous
  Country: IT (occurrence: IT)
  Receive Date: 20130419
  Receipt Date: 20130419
  Transmission Date: 20140414
  Serious: Yes (Hospitalization)
  Sender: FDA-Public Use
  Company Number: IT-TEVA-397350ISR

PATIENT
  Age: 24 Year
  Sex: Male

DRUGS (3)
  1. CISPLATINO TEVA [Suspect]
     Indication: TESTIS CANCER
     Dosage: 38MG, CYCLICAL
     Route: 042
     Dates: start: 20130110, end: 20130114
  2. BLEOMICINA SOLFATO [Suspect]
     Indication: TESTIS CANCER
     Dosage: 30MG, CYCLICAL
     Route: 042
     Dates: start: 20130110, end: 20130114
  3. ETOPOSIDE SANDOZ [Suspect]
     Indication: TESTIS CANCER
     Dosage: 190MG, CYCLICAL
     Route: 042
     Dates: start: 20130110, end: 20130114

REACTIONS (3)
  - Neutropenia [Recovering/Resolving]
  - Thrombocytopenia [Recovering/Resolving]
  - Stomatitis [Recovering/Resolving]
